FAERS Safety Report 8176776 (Version 6)
Quarter: 2014Q1

REPORT INFORMATION
  Report Type: Report from Study
  Country: KR (occurrence: KR)
  Receive Date: 20111012
  Receipt Date: 20140120
  Transmission Date: 20141002
  Serious: Yes (Death, Hospitalization)
  Sender: FDA-Public Use
  Company Number: KR-BAYER-2011-097123

PATIENT
  Age: 88 Year
  Sex: Male
  Weight: 59.4 kg

DRUGS (8)
  1. NEXAVAR [Suspect]
     Indication: HEPATOCELLULAR CARCINOMA
     Dosage: 400 MG, DAILY
     Route: 048
     Dates: start: 20110730, end: 20110904
  2. URSACOL [Concomitant]
     Indication: HEPATOCELLULAR CARCINOMA
     Dosage: 100 MG
     Route: 048
     Dates: start: 20110726, end: 20110904
  3. LEGALON [Concomitant]
     Indication: HEPATOCELLULAR CARCINOMA
     Dosage: 140 MG,
     Route: 048
     Dates: start: 20110726, end: 20110904
  4. PHAZYME [Concomitant]
     Indication: PROPHYLAXIS
     Dosage: 95 MG, UNK
     Route: 048
     Dates: start: 20110726, end: 20110822
  5. MAGMIL [Concomitant]
     Dosage: 500 MG, UNK
     Route: 048
     Dates: start: 20110726, end: 20110822
  6. BUSCOPAN [Concomitant]
     Dosage: 10 MG, UNK
     Route: 048
     Dates: start: 20110726, end: 20110904
  7. DIOSMIN W/HESPERIDIN [Concomitant]
     Dosage: 500 MG, UNK
     Route: 048
     Dates: start: 20110726, end: 20110822
  8. SPIRONOLACTONE [Concomitant]
     Indication: ASCITES
     Dosage: 25 MG, UNK
     Route: 048
     Dates: start: 20110728, end: 20110904

REACTIONS (1)
  - Hepatorenal syndrome [Fatal]
